FAERS Safety Report 8264497-1 (Version None)
Quarter: 2012Q2

REPORT INFORMATION
  Report Type: 
  Country: None (occurrence: None)
  Receive Date: 20120403
  Receipt Date: 20120323
  Transmission Date: 20120825
  Serious: Yes (Other)
  Sender: FDA-Public Use
  Company Number: KAD201203-000197

PATIENT
  Age: 49 Year
  Sex: Female
  Weight: 102.0593 kg

DRUGS (21)
  1. RIBAVIRIN [Suspect]
     Indication: HEPATITIS C
     Dosage: 600 MG, 3 DAYS A WEEK, ORAL, 600 MG IN MORNING AND EVENING, DAILY
     Route: 048
     Dates: start: 20110501
  2. RIBAVIRIN [Suspect]
     Indication: HEPATITIS C
     Dosage: 600 MG, 3 DAYS A WEEK, ORAL, 600 MG IN MORNING AND EVENING, DAILY
     Route: 048
     Dates: start: 20111108
  3. FOSAMAX [Concomitant]
  4. CLONAZEPAM [Concomitant]
  5. ISONIAZID [Concomitant]
  6. BACTROBAN [Concomitant]
  7. INFERGEN [Suspect]
     Indication: HEPATITIS C
     Dosage: TREATED FOR WRONG GENOTYPE 1, 15 MCG/0.5ML, THRICE WEEKLY, INJECTION, SUBCUTANEOUS
     Route: 058
     Dates: start: 20110501
  8. INFERGEN [Suspect]
     Indication: HEPATITIS C
     Dosage: TREATED FOR WRONG GENOTYPE 1, 15 MCG/0.5ML, THRICE WEEKLY, INJECTION, SUBCUTANEOUS
     Route: 058
     Dates: start: 20111108
  9. TOPAMAX [Concomitant]
  10. HIBICLENS [Concomitant]
  11. OXYGEN [Concomitant]
  12. PREDNISONE TAB [Concomitant]
  13. CALCIUM/VITAMIN D [Concomitant]
  14. METHADONE HCL [Concomitant]
  15. PHENERGAN HCL [Concomitant]
  16. TRIAMCINOLONE ACETONIDE [Concomitant]
  17. MOTRIN [Concomitant]
  18. XANAX [Concomitant]
  19. CLINDAMYCIN PHOSPHATE [Concomitant]
  20. DULERA ORAL INHALATION [Concomitant]
  21. VENTOLIN [Concomitant]

REACTIONS (16)
  - MOBILITY DECREASED [None]
  - FATIGUE [None]
  - BLOOD TEST ABNORMAL [None]
  - PYREXIA [None]
  - SKIN ULCER [None]
  - DEPRESSION [None]
  - RASH VESICULAR [None]
  - STAPHYLOCOCCAL SKIN INFECTION [None]
  - IMPAIRED HEALING [None]
  - PAIN [None]
  - MALAISE [None]
  - SKIN DISORDER [None]
  - WHITE BLOOD CELL COUNT DECREASED [None]
  - MEDICATION ERROR [None]
  - INFLUENZA LIKE ILLNESS [None]
  - ASTHENIA [None]
